FAERS Safety Report 15720328 (Version 1)
Quarter: 2018Q4

REPORT INFORMATION
  Report Type: Report from Study
  Country: US (occurrence: US)
  Receive Date: 20181213
  Receipt Date: 20181213
  Transmission Date: 20190205
  Serious: Yes (Hospitalization, Other)
  Sender: FDA-Public Use
  Company Number: US-SHIRE-US201845208

PATIENT
  Age: 54 Year
  Sex: Male

DRUGS (1)
  1. TAKHZYRO [Suspect]
     Active Substance: LANADELUMAB-FLYO
     Indication: PRODUCT USED FOR UNKNOWN INDICATION
     Dosage: 300 MG, 1X/2WKS
     Route: 058
     Dates: start: 20181023, end: 20181129

REACTIONS (9)
  - Injection site pain [Recovered/Resolved]
  - Irritability [Recovered/Resolved]
  - Malaise [Recovered/Resolved]
  - Joint swelling [Not Recovered/Not Resolved]
  - Hospitalisation [Unknown]
  - Paraesthesia [Recovered/Resolved]
  - Urticaria [Not Recovered/Not Resolved]
  - Hereditary angioedema [Recovered/Resolved]
  - Erythema [Not Recovered/Not Resolved]

NARRATIVE: CASE EVENT DATE: 20181116
